FAERS Safety Report 9657598 (Version 2)
Quarter: 2013Q4

REPORT INFORMATION
  Report Type: Spontaneous
  Country: IT (occurrence: None)
  Receive Date: 20131029
  Receipt Date: 20131211
  Transmission Date: 20140711
  Serious: Yes (Hospitalization)
  Sender: FDA-Public Use
  Company Number: AUR-APL-2013-08884

PATIENT
  Age: 58 Year
  Sex: Male

DRUGS (3)
  1. AMOXICILLIN \CLAVANIC ACID [Suspect]
     Indication: PERIODONTAL DISEASE
     Dosage: UNKNOWN
     Dates: start: 201201
  2. ?DOXAZOSIN) [Suspect]
     Indication: PRODUCT USED FOR UNKNOWN INDICATION
     Dosage: UNKNOWN
  3. TAPAZOLE [Concomitant]

REACTIONS (7)
  - Electrocardiogram ST segment elevation [None]
  - Chest pain [None]
  - Dyspnoea [None]
  - Acute myocardial infarction [None]
  - Anaphylactic reaction [None]
  - Kounis syndrome [None]
  - Angina unstable [None]
